FAERS Safety Report 4835886-X (Version None)
Quarter: 2005Q4

REPORT INFORMATION
  Report Type: 
  Country: None (occurrence: None)
  Receive Date: 20051118
  Receipt Date: 20051104
  Transmission Date: 20060501
  Serious: Yes (Hospitalization)
  Sender: FDA-Public Use
  Company Number: 2005S1009055

PATIENT
  Age: 65 Year
  Sex: Female

DRUGS (10)
  1. APOMORPHINE HYDROCHLORIDE (APOMORPHINE HYDROCHLORIDE)  (10 MG/ML) [Suspect]
     Indication: PARKINSON'S DISEASE
     Dosage: 6 MG/HR; SC
     Route: 058
     Dates: start: 20050123, end: 20050905
  2. LEVODOPA/BENSERAZIDE HYDROCHLORIDE [Concomitant]
  3. CARBIDOPA AND LEVODOPA [Concomitant]
  4. ENTACAPONE [Concomitant]
  5. PRAMIPEXOLE [Concomitant]
  6. DIHYDROCHLORIDE [Concomitant]
  7. AMANTIDINE HEMISULPHATE [Concomitant]
  8. TILIDINE HYDROCHLORIDE [Concomitant]
  9. CLONAZEPAM [Concomitant]
  10. DOMPERIDONE [Concomitant]

REACTIONS (1)
  - HAEMOLYTIC ANAEMIA [None]
